FAERS Safety Report 6040191-2 (Version None)
Quarter: 2009Q1

REPORT INFORMATION
  Report Type: 
  Country: None (occurrence: None)
  Receive Date: 20090116
  Receipt Date: 20080108
  Transmission Date: 20090719
  Serious: No
  Sender: FDA-Public Use
  Company Number: US-BRISTOL-MYERS SQUIBB COMPANY-14034342

PATIENT
  Age: 27 Year
  Sex: Male

DRUGS (6)
  1. ABILIFY [Suspect]
     Route: 048
  2. CELEXA [Concomitant]
  3. ENBREL [Concomitant]
  4. COGENTIN [Concomitant]
  5. VALIUM [Concomitant]
  6. PROVIGIL [Concomitant]

REACTIONS (2)
  - MUSCLE TWITCHING [None]
  - PROTRUSION TONGUE [None]
